FAERS Safety Report 5871925-5 (Version None)
Quarter: 2008Q3

REPORT INFORMATION
  Report Type: 
  Country: None (occurrence: None)
  Receive Date: 20080905
  Receipt Date: 20080904
  Transmission Date: 20090109
  Serious: Yes (Death, Hospitalization, Other)
  Sender: FDA-Public Use
  Company Number: GB-JNJFOC-20080900412

PATIENT
  Age: 21 Year
  Sex: Female

DRUGS (5)
  1. DOXORUBICIN HCL [Suspect]
     Indication: PRIMARY MEDIASTINAL LARGE B-CELL LYMPHOMA
     Route: 042
  2. CYCLOPHOSPHAMIDE [Suspect]
     Indication: PRIMARY MEDIASTINAL LARGE B-CELL LYMPHOMA
     Route: 065
  3. PREDNISOLONE [Suspect]
     Indication: PRIMARY MEDIASTINAL LARGE B-CELL LYMPHOMA
     Route: 065
  4. RITUXIMAB [Suspect]
     Indication: PRIMARY MEDIASTINAL LARGE B-CELL LYMPHOMA
     Route: 065
  5. VINCRISTINE [Suspect]
     Indication: PRIMARY MEDIASTINAL LARGE B-CELL LYMPHOMA
     Route: 065

REACTIONS (1)
  - HEPATITIS B [None]
